FAERS Safety Report 4937115-5 (Version None)
Quarter: 2006Q1

REPORT INFORMATION
  Report Type: 
  Country: None (occurrence: None)
  Receive Date: 20060307
  Receipt Date: 20060307
  Transmission Date: 20060701
  Serious: Yes (Other)
  Sender: FDA-Public Use
  Company Number: None

PATIENT
  Age: 77 Year
  Sex: Female
  Weight: 86.1834 kg

DRUGS (1)
  1. MS CONTIN [Suspect]
     Indication: PAIN MANAGEMENT
     Dosage: 60 MG  TID  ORAL
     Route: 048
     Dates: start: 20060207, end: 20060212

REACTIONS (3)
  - CONSTIPATION [None]
  - FEELING JITTERY [None]
  - MALAISE [None]
